FAERS Safety Report 4382563-8 (Version None)
Quarter: 2004Q2

REPORT INFORMATION
  Report Type: 
  Country: None (occurrence: None)
  Receive Date: 20040622
  Receipt Date: 20040611
  Transmission Date: 20050107
  Serious: Yes (Other)
  Sender: FDA-Public Use
  Company Number: US-MERCK-0406USA01384

PATIENT
  Age: 61 Year
  Sex: Male

DRUGS (4)
  1. ALLOPURINOL [Concomitant]
     Route: 065
  2. INDOCIN [Suspect]
     Indication: GOUT
     Route: 048
     Dates: start: 19980101, end: 20040501
  3. ISOSORBIDE [Concomitant]
     Route: 065
  4. LABETALOL HYDROCHLORIDE [Concomitant]
     Route: 065

REACTIONS (2)
  - DIARRHOEA [None]
  - MYOCARDIAL INFARCTION [None]
